FAERS Safety Report 7241062-6 (Version None)
Quarter: 2011Q1

REPORT INFORMATION
  Report Type: 
  Country: None (occurrence: None)
  Receive Date: 20110124
  Receipt Date: 20110118
  Transmission Date: 20110831
  Serious: Yes (Other)
  Sender: FDA-Public Use
  Company Number: DE-PFIZER INC-2011011682

PATIENT

DRUGS (2)
  1. LYRICA [Suspect]
  2. LORZAAR [Concomitant]

REACTIONS (1)
  - HYPERKALAEMIA [None]
